FAERS Safety Report 9571846 (Version 2)
Quarter: 2013Q4

REPORT INFORMATION
  Report Type: Spontaneous
  Country: US (occurrence: US)
  Receive Date: 20131001
  Receipt Date: 20131001
  Transmission Date: 20140711
  Serious: No
  Sender: FDA-Public Use
  Company Number: US-ABBVIE-13P-163-1081611-00

PATIENT
  Age: 27 Year
  Sex: Female

DRUGS (2)
  1. KALETRA [Suspect]
     Indication: ANTIRETROVIRAL THERAPY
     Dosage: COURSE 26, TOTAL DAILY DOSE: 800/200, MG/DAY
     Route: 048
     Dates: start: 20130123
  2. COMBIVIR [Suspect]
     Indication: ANTIRETROVIRAL THERAPY
     Dosage: COURSE 26, TOTAL DAILY DOSE 300/600, MG/DAY
     Route: 048
     Dates: start: 20130123

REACTIONS (1)
  - Sexually transmitted disease [Unknown]
